FAERS Safety Report 21933788 (Version 2)
Quarter: 2023Q1

REPORT INFORMATION
  Report Type: Report from Study
  Country: ES (occurrence: None)
  Receive Date: 20230201
  Receipt Date: 20230209
  Transmission Date: 20230418
  Serious: Yes (Hospitalization)
  Sender: FDA-Public Use
  Company Number: ES-ROCHE-3178485

PATIENT
  Age: 71 Year
  Sex: Female
  Weight: 51.8 kg

DRUGS (8)
  1. TIRAGOLUMAB [Suspect]
     Active Substance: TIRAGOLUMAB
     Indication: Small cell lung cancer metastatic
     Dosage: LAST STUDY DRUG ADMIN PRIOR AE 840 MG, MOST RECENT DOSE OF STUDY DRUG PRIOR TO AE: 16/AUG/2022 3:42
     Route: 042
     Dates: start: 20211123
  2. ATEZOLIZUMAB [Suspect]
     Active Substance: ATEZOLIZUMAB
     Indication: Small cell lung cancer metastatic
     Dosage: LAST STUDY DRUG ADMIN PRIOR AE 1680 MG, MOST RECENT DOSE OF STUDY DRUG PRIOR TO AE: 16/AUG/2022 2:07
     Route: 041
     Dates: start: 20211123
  3. CARBOPLATIN [Suspect]
     Active Substance: CARBOPLATIN
     Indication: Small cell lung cancer metastatic
     Dosage: DOSE LAST STUDY DRUG ADMIN PRIOR AE WAS 488.3 MG?O7/FEB/2022, START DATE OF MOST RECENT DOSE OF STUD
     Route: 042
     Dates: start: 20211123
  4. ETOPOSIDE [Suspect]
     Active Substance: ETOPOSIDE
     Indication: Small cell lung cancer metastatic
     Dosage: DOSE LAST STUDY DRUG ADMIN PRIOR AE/SAE WAS 150 MG?ON 09/FEB/2022, START DATE OF MOST RECENT DOSE OF
     Route: 042
     Dates: start: 20211123
  5. PREGABALIN [Concomitant]
     Active Substance: PREGABALIN
     Indication: Back pain
     Route: 048
  6. CETIRIZINE [Concomitant]
     Active Substance: CETIRIZINE HYDROCHLORIDE
     Indication: Mite allergy
     Route: 048
  7. ACETAMINOPHEN [Concomitant]
     Active Substance: ACETAMINOPHEN
     Indication: Back pain
     Route: 048
  8. CALCIUM\CHOLECALCIFEROL [Concomitant]
     Active Substance: CALCIUM\CHOLECALCIFEROL
     Indication: Osteoporosis
     Route: 048

REACTIONS (1)
  - Type 1 diabetes mellitus [Not Recovered/Not Resolved]

NARRATIVE: CASE EVENT DATE: 20220910
